FAERS Safety Report 4356592-4 (Version None)
Quarter: 2004Q2

REPORT INFORMATION
  Report Type: 
  Country: None (occurrence: None)
  Receive Date: 20040507
  Receipt Date: 20040419
  Transmission Date: 20050107
  Serious: Yes (Hospitalization)
  Sender: FDA-Public Use
  Company Number: CA_031206504

PATIENT
  Age: 65 Year
  Sex: Female
  Weight: 75 kg

DRUGS (13)
  1. GEMCITABINE HYDROCHLORIDE-IV (GEMCITABINE) [Suspect]
     Indication: NON-SMALL CELL LUNG CANCER
     Dosage: 1250 MG/M2/OTHER
     Route: 050
     Dates: start: 20031204
  2. MEPM (LY293111) [Suspect]
     Indication: NON-SMALL CELL LUNG CANCER
     Dosage: 600 MG
     Dates: start: 20031127
  3. CISPLATIN [Suspect]
     Indication: NON-SMALL CELL LUNG CANCER
     Dosage: 75 MG/M2/OTHER
     Route: 050
     Dates: start: 20031204
  4. PROCHLORPERAZINE [Concomitant]
  5. DURICEF [Concomitant]
  6. LOSEC (OMEPRAZOLE) [Concomitant]
  7. ZOLOFT [Concomitant]
  8. ENOXAPARIN SODIUM [Concomitant]
  9. EMPRACET (PARACETAMOL) [Concomitant]
  10. CIPRO [Concomitant]
  11. NOVO-SERTRALINE (SERTRALINE HYDROCHLORIDE) [Concomitant]
  12. ATIVAN [Concomitant]
  13. NORVASC [Concomitant]

REACTIONS (30)
  - ACTIVATED PARTIAL THROMBOPLASTIN TIME PROLONGED [None]
  - ACTIVATED PARTIAL THROMBOPLASTIN TIME SHORTENED [None]
  - ACUTE PRERENAL FAILURE [None]
  - ANAEMIA [None]
  - ASCITES [None]
  - ASTHENIA [None]
  - BLOOD PRESSURE SYSTOLIC INCREASED [None]
  - CATHETER RELATED COMPLICATION [None]
  - CHOLELITHIASIS [None]
  - CLOSTRIDIUM COLITIS [None]
  - DEEP VEIN THROMBOSIS [None]
  - DEHYDRATION [None]
  - DIARRHOEA [None]
  - DIVERTICULUM [None]
  - DIZZINESS [None]
  - DUODENITIS [None]
  - DYSPNOEA [None]
  - HAEMATOMA [None]
  - HAEMORRHAGE [None]
  - HIATUS HERNIA [None]
  - HYPOVOLAEMIA [None]
  - NAUSEA [None]
  - NEUTROPENIA [None]
  - NEUTROPHIL COUNT DECREASED [None]
  - OCCULT BLOOD POSITIVE [None]
  - PLATELET COUNT INCREASED [None]
  - RED BLOOD CELL COUNT DECREASED [None]
  - THROMBOCYTOPENIA [None]
  - VOMITING [None]
  - WHITE BLOOD CELL COUNT DECREASED [None]
